FAERS Safety Report 7425273-2 (Version None)
Quarter: 2011Q2

REPORT INFORMATION
  Report Type: 
  Country: None (occurrence: None)
  Receive Date: 20110420
  Receipt Date: 20101209
  Transmission Date: 20111010
  Serious: Yes (Hospitalization)
  Sender: FDA-Public Use
  Company Number: US-BAYER-201030007NA

PATIENT
  Age: 19 Year
  Sex: Female
  Weight: 77.098 kg

DRUGS (1)
  1. YAZ [Suspect]
     Indication: CONTRACEPTION
     Route: 048
     Dates: start: 20061201, end: 20070706

REACTIONS (3)
  - PYREXIA [None]
  - CHEST PAIN [None]
  - PULMONARY EMBOLISM [None]
